FAERS Safety Report 4610728-6 (Version None)
Quarter: 2005Q2

REPORT INFORMATION
  Report Type: 
  Country: None (occurrence: None)
  Receive Date: 20050301
  Receipt Date: 20041118
  Transmission Date: 20051028
  Serious: No
  Sender: FDA-Public Use
  Company Number: WAES 0411USA03293

PATIENT
  Age: 68 Year
  Sex: Female

DRUGS (6)
  1. ZETIA [Suspect]
     Indication: BLOOD CHOLESTEROL INCREASED
     Dosage: 10 MG/DAILY/PO
     Route: 048
     Dates: start: 20040501
  2. DIAZIDE [Concomitant]
  3. PLENDIL [Concomitant]
  4. CORTICOSTEROIDS (UNSPECIFIED) [Concomitant]
  5. FOLIC ACID [Concomitant]
  6. VITAMINS (UNSPECIFIED) [Concomitant]

REACTIONS (2)
  - FLUID RETENTION [None]
  - WEIGHT INCREASED [None]
